FAERS Safety Report 6389425-5 (Version None)
Quarter: 2009Q4

REPORT INFORMATION
  Report Type: 
  Country: None (occurrence: None)
  Receive Date: 20091006
  Receipt Date: 20070618
  Transmission Date: 20100525
  Serious: Yes (Other)
  Sender: FDA-Public Use
  Company Number: US-ASTRAZENECA-2006UW11557

PATIENT
  Age: 18739 Day
  Sex: Male
  Weight: 79.4 kg

DRUGS (23)
  1. SEROQUEL [Suspect]
     Indication: ANXIETY
     Route: 048
     Dates: start: 19980501
  2. SEROQUEL [Suspect]
     Indication: DEPRESSION
     Route: 048
     Dates: start: 19980501
  3. SEROQUEL [Suspect]
     Indication: SCHIZOPHRENIA
     Route: 048
     Dates: start: 19980501
  4. SEROQUEL [Suspect]
     Indication: IRRITABILITY
     Route: 048
     Dates: start: 19980501
  5. SEROQUEL [Suspect]
     Indication: SLEEP DISORDER
     Route: 048
     Dates: start: 19980501
  6. SEROQUEL [Suspect]
     Dosage: 40MG TO 400 MG
     Route: 048
     Dates: start: 20000223
  7. SEROQUEL [Suspect]
     Dosage: 40MG TO 400 MG
     Route: 048
     Dates: start: 20000223
  8. SEROQUEL [Suspect]
     Dosage: 40MG TO 400 MG
     Route: 048
     Dates: start: 20000223
  9. SEROQUEL [Suspect]
     Dosage: 40MG TO 400 MG
     Route: 048
     Dates: start: 20000223
  10. SEROQUEL [Suspect]
     Dosage: 40MG TO 400 MG
     Route: 048
     Dates: start: 20000223
  11. SERTRALINE HCL [Concomitant]
     Dates: start: 20000101
  12. SIMVASTATIN [Concomitant]
     Indication: BLOOD CHOLESTEROL INCREASED
     Dates: start: 20000101, end: 20060101
  13. SIMVASTATIN [Concomitant]
     Route: 048
     Dates: start: 20010606
  14. METOPROLOL TARTRATE [Concomitant]
     Indication: HYPERTENSION
     Dosage: 50MG TAB, HALF TAB TWO TIMES A DAY
     Route: 048
     Dates: start: 20060725
  15. PROMETHAZINE HCL [Concomitant]
     Indication: NAUSEA
     Route: 048
     Dates: start: 20040326
  16. LISINOPRIL [Concomitant]
     Indication: BLOOD PRESSURE
     Dosage: 20MG, HALF TAB DAILY
     Route: 048
     Dates: start: 20040116
  17. FELODIPINE [Concomitant]
     Indication: BLOOD PRESSURE
     Route: 048
     Dates: start: 20040326
  18. NITROGLYCERIN [Concomitant]
     Indication: CHEST PAIN
     Dosage: 0.4MG, EVERY FIVE MINUTES AS NEEDED
     Route: 060
     Dates: start: 20040326
  19. ASPIRIN [Concomitant]
     Route: 048
     Dates: start: 20030205
  20. ISOSORBIDE DINITRATE [Concomitant]
     Route: 048
     Dates: start: 20060725
  21. SERTRALINE HCL [Concomitant]
     Indication: DEPRESSION
     Dosage: 100MG, TWO TABS AT NIGHT
     Route: 048
     Dates: start: 20010503
  22. COUMADIN [Concomitant]
     Route: 048
     Dates: start: 20040326
  23. ATENOLOL [Concomitant]
     Indication: BLOOD PRESSURE
     Dates: start: 20040326

REACTIONS (5)
  - ARTERIOSCLEROSIS CORONARY ARTERY [None]
  - BLOOD CHOLESTEROL INCREASED [None]
  - DIABETES MELLITUS [None]
  - HYPERLIPIDAEMIA [None]
  - TYPE 2 DIABETES MELLITUS [None]
